FAERS Safety Report 19487397 (Version 2)
Quarter: 2021Q3

REPORT INFORMATION
  Report Type: Report from Study
  Country: US (occurrence: US)
  Receive Date: 20210702
  Receipt Date: 20210805
  Transmission Date: 20211014
  Serious: Yes (Other)
  Sender: FDA-Public Use
  Company Number: US-OTSUKA-2021_022721

PATIENT
  Sex: Female
  Weight: 89.09 kg

DRUGS (1)
  1. CEDAZURIDINE AND DECITABINE [Suspect]
     Active Substance: CEDAZURIDINE\DECITABINE
     Indication: REFRACTORY ANAEMIA WITH AN EXCESS OF BLASTS
     Dosage: 35?100MG BY MOUTH ONCE DAILY ON DAYS 1?5 OF EACH 28 DAY CYCLE
     Route: 048
     Dates: start: 20210614

REACTIONS (2)
  - Transfusion [Unknown]
  - Platelet transfusion [Unknown]
